FAERS Safety Report 18148631 (Version 1)
Quarter: 2020Q3

REPORT INFORMATION
  Report Type: Report from Study
  Country: DE (occurrence: DE)
  Receive Date: 20200813
  Receipt Date: 20200813
  Transmission Date: 20201103
  Serious: Yes (Other)
  Sender: FDA-Public Use
  Company Number: NVSC2020DE220569

PATIENT
  Sex: Male
  Weight: 84 kg

DRUGS (3)
  1. RESTEX [Concomitant]
     Active Substance: BENSERAZIDE\LEVODOPA
     Indication: RESTLESS LEGS SYNDROME
     Dosage: 25 MG, QD
     Route: 065
  2. FAMPYRA [Concomitant]
     Active Substance: DALFAMPRIDINE
     Indication: MULTIPLE SCLEROSIS
     Dosage: 10 MG, QD
     Route: 065
  3. MAYZENT [Suspect]
     Active Substance: SIPONIMOD
     Indication: SECONDARY PROGRESSIVE MULTIPLE SCLEROSIS
     Dosage: 2 MG, QD
     Route: 048
     Dates: start: 20200427

REACTIONS (2)
  - Lymphocyte count decreased [Not Recovered/Not Resolved]
  - CD4 lymphocytes decreased [Not Recovered/Not Resolved]

NARRATIVE: CASE EVENT DATE: 20200804
